FAERS Safety Report 24037224 (Version 2)
Quarter: 2024Q3

REPORT INFORMATION
  Report Type: Report from Study
  Country: US (occurrence: US)
  Receive Date: 20240701
  Receipt Date: 20240703
  Transmission Date: 20241017
  Serious: Yes (Other)
  Sender: ABBVIE
  Company Number: US-ABBVIE-5821658

PATIENT
  Age: 29 Year
  Sex: Female

DRUGS (1)
  1. HUMIRA [Suspect]
     Active Substance: ADALIMUMAB
     Indication: Colitis ulcerative
     Route: 058
     Dates: start: 20231104

REACTIONS (4)
  - Loss of consciousness [Unknown]
  - Hypophagia [Not Recovered/Not Resolved]
  - Stress [Unknown]
  - Dehydration [Unknown]

NARRATIVE: CASE EVENT DATE: 20240601
